FAERS Safety Report 6953627-7 (Version None)
Quarter: 2010Q3

REPORT INFORMATION
  Report Type: 
  Country: None (occurrence: None)
  Receive Date: 20100829
  Receipt Date: 20100609
  Transmission Date: 20110219
  Serious: No
  Sender: FDA-Public Use
  Company Number: US-ABBOTT-10P-163-0651657-00

PATIENT
  Sex: Male
  Weight: 82.628 kg

DRUGS (7)
  1. NIASPAN [Suspect]
     Indication: PRODUCT USED FOR UNKNOWN INDICATION
     Dosage: 1 IN 1D, EVERY NIGHT
     Dates: start: 20100608
  2. ASPIRIN [Concomitant]
     Indication: PRODUCT USED FOR UNKNOWN INDICATION
     Dosage: 1/2 HR BEFORE NIASPAN COATED
  3. BISOPROLOL [Concomitant]
     Indication: ARRHYTHMIA
  4. WELCHOL [Concomitant]
     Indication: BILE OUTPUT ABNORMAL
  5. WELCHOL [Concomitant]
     Indication: CHOLECYSTECTOMY
  6. FLOMAX [Concomitant]
     Indication: PROSTATOMEGALY
  7. DICLOFENAC [Concomitant]
     Indication: ARTHRITIS

REACTIONS (2)
  - ABDOMINAL PAIN UPPER [None]
  - PARAESTHESIA [None]
